FAERS Safety Report 25961026 (Version 1)
Quarter: 2025Q4

REPORT INFORMATION
  Report Type: Spontaneous
  Country: EU (occurrence: EU)
  Receive Date: 20251027
  Receipt Date: 20251027
  Transmission Date: 20260117
  Serious: Yes (Other)
  Sender: AMGEN
  Company Number: EU-AMGEN-BGRSP2025209099

PATIENT
  Age: 9 Month
  Sex: Female

DRUGS (1)
  1. BLINCYTO [Suspect]
     Active Substance: BLINATUMOMAB
     Indication: B precursor type acute leukaemia
     Dosage: UNK, INDUCTION PHASE, FIRST COURSE
     Route: 065

REACTIONS (2)
  - Hypogammaglobulinaemia [Unknown]
  - Central nervous system leukaemia [Unknown]

NARRATIVE: CASE EVENT DATE: 20250130
